FAERS Safety Report 6773562-7 (Version None)
Quarter: 2010Q2

REPORT INFORMATION
  Report Type: 
  Country: None (occurrence: None)
  Receive Date: 20100616
  Receipt Date: 20100607
  Transmission Date: 20101027
  Serious: Yes (Hospitalization, Other)
  Sender: FDA-Public Use
  Company Number: US-AMGEN-KDL416947

PATIENT
  Sex: Female

DRUGS (1)
  1. ENBREL [Suspect]
     Indication: RHEUMATOID ARTHRITIS
     Route: 058
     Dates: start: 20010701

REACTIONS (4)
  - AUTOIMMUNE HEPATITIS [None]
  - BREAST CANCER FEMALE [None]
  - INCISION SITE HAEMORRHAGE [None]
  - RHEUMATOID ARTHRITIS [None]
